FAERS Safety Report 23398053 (Version 1)
Quarter: 2024Q1

REPORT INFORMATION
  Report Type: Spontaneous
  Country: CA (occurrence: CA)
  Receive Date: 20240112
  Receipt Date: 20240112
  Transmission Date: 20240410
  Serious: Yes (Hospitalization)
  Sender: FDA-Public Use
  Company Number: CA-009507513-2401CAN005880

PATIENT
  Age: 78 Year
  Sex: Female
  Weight: 48 kg

DRUGS (2)
  1. KEYTRUDA [Suspect]
     Active Substance: PEMBROLIZUMAB
     Dosage: 200 MILLIGRAM
     Route: 042
  2. GEMCITABINE [Suspect]
     Active Substance: GEMCITABINE
     Indication: Non-small cell lung cancer stage IV
     Dosage: 1688.0 MILLIGRAM
     Route: 042

REACTIONS (6)
  - Blood creatinine increased [Unknown]
  - Hepatic enzyme increased [Unknown]
  - Mucosal disorder [Unknown]
  - Rash [Unknown]
  - Rash erythematous [Unknown]
  - Skin exfoliation [Unknown]
